FAERS Safety Report 24858577 (Version 4)
Quarter: 2025Q4

REPORT INFORMATION
  Report Type: Report from Study
  Country: KR (occurrence: KR)
  Receive Date: 20250117
  Receipt Date: 20251128
  Transmission Date: 20260118
  Serious: Yes (Death, Hospitalization, Other)
  Sender: ABBVIE
  Company Number: KR-ABBVIE-6090993

PATIENT
  Age: 81 Year
  Sex: Male
  Weight: 70 kg

DRUGS (52)
  1. VENCLEXTA [Suspect]
     Active Substance: VENETOCLAX
     Indication: Acute myeloid leukaemia
     Route: 048
     Dates: start: 20240705, end: 20240705
  2. VENCLEXTA [Suspect]
     Active Substance: VENETOCLAX
     Indication: Acute myeloid leukaemia
     Route: 048
     Dates: start: 20240702, end: 20240702
  3. VENCLEXTA [Suspect]
     Active Substance: VENETOCLAX
     Indication: Acute myeloid leukaemia
     Route: 048
     Dates: start: 20240703, end: 20240703
  4. VENCLEXTA [Suspect]
     Active Substance: VENETOCLAX
     Indication: Acute myeloid leukaemia
     Route: 048
     Dates: start: 20240704, end: 20240704
  5. VENCLEXTA [Suspect]
     Active Substance: VENETOCLAX
     Indication: Acute myeloid leukaemia
     Route: 048
     Dates: start: 20241204, end: 20241231
  6. VENCLEXTA [Suspect]
     Active Substance: VENETOCLAX
     Indication: Acute myeloid leukaemia
     Route: 048
     Dates: start: 20240718, end: 20241110
  7. NALOXONE HYDROCHLORIDE\OXYCODONE HYDROCHLORIDE [Concomitant]
     Active Substance: NALOXONE HYDROCHLORIDE\OXYCODONE HYDROCHLORIDE
     Indication: Back pain
     Dosage: PR TAB 5/2.5MG
     Route: 048
     Dates: start: 20240701
  8. Tazoperan [Concomitant]
     Indication: Pyrexia
     Dosage: 4.5G
     Route: 042
     Dates: start: 20250113, end: 20250114
  9. CALCIUM POLYCARBOPHIL [Concomitant]
     Active Substance: CALCIUM POLYCARBOPHIL
     Indication: Constipation
     Route: 048
     Dates: start: 20241208, end: 20241214
  10. MIRABEGRON [Concomitant]
     Active Substance: MIRABEGRON
     Indication: Pollakiuria
     Dosage: PR TAB 50MG
     Route: 048
     Dates: start: 20240712, end: 20240908
  11. SULFAMETHOXAZOLE\TRIMETHOPRIM [Concomitant]
     Active Substance: SULFAMETHOXAZOLE\TRIMETHOPRIM
     Indication: Infection prophylaxis
     Route: 048
     Dates: start: 20240702, end: 20250107
  12. Allpain [Concomitant]
     Indication: Arthralgia
     Dosage: TIME INTERVAL: 0.33333333 DAYS: INJ 4ML
     Route: 042
     Dates: start: 20241223, end: 20250112
  13. Siwonal sr [Concomitant]
     Indication: Pollakiuria
     Route: 048
     Dates: start: 20240909, end: 20250112
  14. Fotagel [Concomitant]
     Indication: Diarrhoea
     Dosage: TIME INTERVAL: 0.33333333 DAYS: SUSP 20ML
     Route: 048
     Dates: start: 20241215, end: 20241225
  15. DIFLUCAN [Concomitant]
     Active Substance: FLUCONAZOLE
     Indication: Infection prophylaxis
     Dosage: 50MG
     Route: 048
     Dates: start: 20240819, end: 20241204
  16. ACETYLCYSTEINE [Concomitant]
     Active Substance: ACETYLCYSTEINE
     Indication: Cough
     Dosage: INJ 100MG/ML 6ML
     Route: 042
     Dates: start: 20241229, end: 20250114
  17. PRUCALOPRIDE SUCCINATE [Concomitant]
     Active Substance: PRUCALOPRIDE SUCCINATE
     Indication: Constipation
     Route: 048
     Dates: start: 20250109, end: 20250113
  18. PRUCALOPRIDE SUCCINATE [Concomitant]
     Active Substance: PRUCALOPRIDE SUCCINATE
     Indication: Constipation
     Route: 048
     Dates: start: 20240704, end: 20240724
  19. LYRICA [Concomitant]
     Active Substance: PREGABALIN
     Indication: Back pain
     Route: 048
     Dates: start: 20240703, end: 20241024
  20. HARNAL [Concomitant]
     Active Substance: TAMSULOSIN HYDROCHLORIDE
     Indication: Pollakiuria
     Route: 048
     Dates: start: 20241203, end: 20250112
  21. Godex [Concomitant]
     Indication: Blood bilirubin increased
     Dosage: TIME INTERVAL: 0.33333333 DAYS
     Route: 048
     Dates: start: 20240725, end: 20240801
  22. ALLOPURINOL [Concomitant]
     Active Substance: ALLOPURINOL
     Indication: Prophylaxis
     Route: 048
     Dates: start: 20240628, end: 20240723
  23. Coritussal f cough [Concomitant]
     Indication: Cough
     Dosage: TIME INTERVAL: 0.33333333 DAYS: COUGH SYRUP
     Route: 048
     Dates: start: 20240721, end: 20241217
  24. Dulackhan easy [Concomitant]
     Indication: Constipation
     Route: 048
     Dates: start: 20241205, end: 20241214
  25. Dulackhan easy [Concomitant]
     Indication: Constipation
     Dosage: TIME INTERVAL: 0.33333333 DAYS
     Route: 048
     Dates: start: 20250105, end: 20250110
  26. Dulackhan easy [Concomitant]
     Indication: Constipation
     Route: 048
     Dates: start: 20240704, end: 20240819
  27. Esomezol [Concomitant]
     Indication: Abdominal discomfort
     Route: 048
     Dates: start: 20241017, end: 20241023
  28. AMLODIPINE CAMSYLATE [Concomitant]
     Active Substance: AMLODIPINE CAMSYLATE
     Indication: Hypertension
     Route: 048
     Dates: start: 20240628, end: 20241225
  29. Naxozol [Concomitant]
     Indication: Pyrexia
     Dosage: 500/20MG
     Route: 048
     Dates: start: 20241215, end: 20250107
  30. Yuhan meropen [Concomitant]
     Indication: Pyrexia
     Dosage: TIME INTERVAL: 0.33333333 DAYS
     Route: 042
     Dates: start: 20241219, end: 20250113
  31. Vacrax [Concomitant]
     Indication: Infection prophylaxis
     Dosage: 200MG
     Route: 048
     Dates: start: 20240702, end: 20250107
  32. Powercol cough [Concomitant]
     Indication: Cough
     Dosage: TIME INTERVAL: 0.33333333 DAYS
     Route: 048
     Dates: start: 20241203, end: 20250112
  33. ERDOSTEINE [Concomitant]
     Active Substance: ERDOSTEINE
     Indication: Cough
     Route: 048
     Dates: start: 20241223, end: 20250112
  34. METOCLOPRAMIDE HYDROCHLORIDE [Concomitant]
     Active Substance: METOCLOPRAMIDE HYDROCHLORIDE
     Indication: Nausea
     Dosage: TIME INTERVAL: AS NECESSARY: 2ML
     Route: 042
     Dates: start: 20240717, end: 20240727
  35. METOCLOPRAMIDE HYDROCHLORIDE [Concomitant]
     Active Substance: METOCLOPRAMIDE HYDROCHLORIDE
     Indication: Nausea
     Dosage: TIME INTERVAL: AS NECESSARY: 2ML
     Route: 042
     Dates: start: 20241017, end: 20241031
  36. METOCLOPRAMIDE HYDROCHLORIDE [Concomitant]
     Active Substance: METOCLOPRAMIDE HYDROCHLORIDE
     Indication: Nausea
     Dosage: TIME INTERVAL: AS NECESSARY: 2ML
     Route: 042
     Dates: start: 20241210, end: 20250114
  37. Levopride [Concomitant]
     Indication: Abdominal discomfort
     Dosage: TIME INTERVAL: 0.33333333 DAYS
     Route: 048
     Dates: start: 20241017, end: 20241023
  38. ULTRACET [Concomitant]
     Active Substance: ACETAMINOPHEN\TRAMADOL HYDROCHLORIDE
     Indication: Back pain
     Route: 048
     Dates: start: 20241014, end: 20250106
  39. Fedulow [Concomitant]
     Indication: Prophylaxis
     Dosage: SUSP 20ML
     Route: 048
     Dates: start: 20240822, end: 20241031
  40. LIPITOR [Concomitant]
     Active Substance: ATORVASTATIN CALCIUM
     Indication: Dyslipidaemia
     Dosage: 10MG
     Route: 048
     Dates: start: 20240701, end: 20241218
  41. MAGNESIUM HYDROXIDE [Concomitant]
     Active Substance: MAGNESIUM HYDROXIDE
     Indication: Constipation
     Route: 048
     Dates: start: 20240704, end: 20240819
  42. MAGNESIUM HYDROXIDE [Concomitant]
     Active Substance: MAGNESIUM HYDROXIDE
     Indication: Constipation
     Route: 048
     Dates: start: 20240801, end: 20240818
  43. NOXAFIL [Concomitant]
     Active Substance: POSACONAZOLE
     Indication: Infection prophylaxis
     Route: 048
     Dates: start: 20240702, end: 20240711
  44. Vizadakin [Concomitant]
     Indication: Acute myeloid leukaemia
     Route: 042
     Dates: start: 20241204, end: 20241210
  45. Vizadakin [Concomitant]
     Indication: Acute myeloid leukaemia
     Route: 042
     Dates: start: 20240702, end: 20240708
  46. Vizadakin [Concomitant]
     Indication: Acute myeloid leukaemia
     Route: 042
     Dates: start: 20240819, end: 20240825
  47. Vizadakin [Concomitant]
     Indication: Acute myeloid leukaemia
     Route: 042
     Dates: start: 20241014, end: 20241020
  48. DIOVAN [Concomitant]
     Active Substance: VALSARTAN
     Indication: Hypertension
     Route: 048
     Dates: start: 20240628, end: 20250112
  49. PROSCAR [Concomitant]
     Active Substance: FINASTERIDE
     Indication: Pollakiuria
     Route: 048
     Dates: start: 20240909, end: 20250112
  50. Topisol [Concomitant]
     Indication: Drug eruption
     Dosage: UNIT DOSE: 1TU TOPICAL
     Route: 065
     Dates: start: 20240726, end: 20240802
  51. VANCOMYCIN HYDROCHLORIDE [Concomitant]
     Active Substance: VANCOMYCIN HYDROCHLORIDE
     Indication: Pyrexia
     Route: 042
     Dates: start: 20241214, end: 20250113
  52. Meropen Yuhan [Concomitant]
     Indication: Pyrexia
     Dosage: TIME INTERVAL: 0.33333333 DAYS: 500 MILLIGRAM
     Route: 042
     Dates: start: 20241219, end: 20250113

REACTIONS (3)
  - Acute myeloid leukaemia [Fatal]
  - Atrial fibrillation [Not Recovered/Not Resolved]
  - Febrile neutropenia [Recovered/Resolved]

NARRATIVE: CASE EVENT DATE: 20240716
